FAERS Safety Report 10080468 (Version 2)
Quarter: 2014Q2

REPORT INFORMATION
  Report Type: Spontaneous
  Country: BR (occurrence: BR)
  Receive Date: 20140416
  Receipt Date: 20140416
  Transmission Date: 20141212
  Serious: Yes (Other)
  Sender: FDA-Public Use
  Company Number: BR-PFIZER INC-2013244909

PATIENT
  Age: 63 Year
  Sex: Female

DRUGS (3)
  1. SUTENT [Suspect]
     Indication: RENAL CELL CARCINOMA
     Dosage: 50 MG, 1X/DAY, CYCLE 4 PER 2
     Route: 048
     Dates: start: 20130809
  2. OMEPRAZOLE [Concomitant]
     Dosage: UNK
  3. FRONTAL [Concomitant]
     Dosage: AS NEEDED

REACTIONS (8)
  - Wheelchair user [Unknown]
  - Nephrolithiasis [Unknown]
  - Blood urine [Not Recovered/Not Resolved]
  - Vomiting [Recovering/Resolving]
  - Dizziness [Unknown]
  - Dysgeusia [Unknown]
  - Blister [Unknown]
  - Wound [Not Recovered/Not Resolved]
